FAERS Safety Report 24971386 (Version 4)
Quarter: 2025Q1

REPORT INFORMATION
  Report Type: Report from Study
  Country: CA (occurrence: CA)
  Receive Date: 20250214
  Receipt Date: 20250310
  Transmission Date: 20250409
  Serious: Yes (Other)
  Sender: TEVA
  Company Number: CA-TEVA-VS-3293332

PATIENT
  Age: 21 Year
  Sex: Female

DRUGS (5)
  1. AJOVY [Suspect]
     Active Substance: FREMANEZUMAB-VFRM
     Indication: Migraine prophylaxis
     Route: 058
     Dates: start: 20241109
  2. AJOVY [Suspect]
     Active Substance: FREMANEZUMAB-VFRM
     Route: 058
     Dates: start: 20241207
  3. AJOVY [Suspect]
     Active Substance: FREMANEZUMAB-VFRM
     Route: 058
     Dates: start: 20250104
  4. AJOVY [Suspect]
     Active Substance: FREMANEZUMAB-VFRM
     Dosage: LAST DOSE ADMINISTERED DATE: 2025-02-01
     Route: 058
     Dates: start: 20250201
  5. TYLENOL [Concomitant]
     Active Substance: ACETAMINOPHEN
     Indication: Migraine
     Route: 065

REACTIONS (15)
  - Syncope [Unknown]
  - Migraine [Unknown]
  - Injection site mass [Unknown]
  - Inappropriate schedule of product administration [Unknown]
  - Dizziness [Unknown]
  - Injection site rash [Unknown]
  - Dyspnoea [Recovered/Resolved]
  - Injection site warmth [Unknown]
  - Fatigue [Unknown]
  - Injection site pruritus [Unknown]
  - Abdominal pain [Unknown]
  - Hypersensitivity [Unknown]
  - Kaleidoscope vision [Unknown]
  - Injection site scar [Unknown]
  - Blindness transient [Unknown]

NARRATIVE: CASE EVENT DATE: 20241101
